FAERS Safety Report 7939912-0 (Version None)
Quarter: 2011Q4

REPORT INFORMATION
  Report Type: 
  Country: None (occurrence: None)
  Receive Date: 20111125
  Receipt Date: 20111121
  Transmission Date: 20120403
  Serious: Yes (Hospitalization, Other)
  Sender: FDA-Public Use
  Company Number: US-AMGEN-USASP2011057997

PATIENT
  Age: 72 Year

DRUGS (1)
  1. PROLIA [Suspect]
     Indication: OSTEOPOROSIS POSTMENOPAUSAL
     Dosage: 1 MG, Q6MO
     Dates: start: 20110906

REACTIONS (12)
  - PELVIC ABSCESS [None]
  - STREPTOCOCCAL BACTERAEMIA [None]
  - ENDOPHTHALMITIS [None]
  - PAIN IN EXTREMITY [None]
  - STREPTOCOCCAL SEPSIS [None]
  - WOUND ABSCESS [None]
  - GROIN PAIN [None]
  - LIVER ABSCESS [None]
  - LUNG ABSCESS [None]
  - PELVIC FRACTURE [None]
  - PYREXIA [None]
  - SUBCUTANEOUS ABSCESS [None]
